FAERS Safety Report 5813216-4 (Version None)
Quarter: 2008Q3

REPORT INFORMATION
  Report Type: 
  Country: None (occurrence: None)
  Receive Date: 20080717
  Receipt Date: 20080428
  Transmission Date: 20090109
  Serious: No
  Sender: FDA-Public Use
  Company Number: A0724996A

PATIENT
  Age: 63 Year
  Sex: Female

DRUGS (1)
  1. NICORETTE [Suspect]

REACTIONS (7)
  - FACIAL PAIN [None]
  - GLOSSODYNIA [None]
  - LIP SWELLING [None]
  - ORAL PAIN [None]
  - STOMATITIS [None]
  - SWELLING FACE [None]
  - TONGUE DISORDER [None]
